FAERS Safety Report 11086540 (Version 1)
Quarter: 2015Q2

REPORT INFORMATION
  Report Type: Report from Study
  Country: JP (occurrence: JP)
  Receive Date: 20150504
  Receipt Date: 20150504
  Transmission Date: 20150821
  Serious: Yes (Other)
  Sender: FDA-Public Use
  Company Number: JP-AMGEN-JPNCT2015042626

PATIENT
  Age: 18 Year
  Sex: Male
  Weight: 58 kg

DRUGS (7)
  1. ASTOMIN                            /00426502/ [Concomitant]
     Indication: PROPHYLAXIS
     Dosage: UNK
     Route: 048
  2. MUCODYNE [Concomitant]
     Active Substance: CARBOCYSTEINE
     Indication: PROPHYLAXIS
     Dosage: UNK
     Route: 048
  3. MYSTAN [Concomitant]
     Active Substance: CLOBAZAM
     Indication: PROPHYLAXIS
     Dosage: UNK
     Route: 048
  4. ALLEGRA [Concomitant]
     Active Substance: FEXOFENADINE HYDROCHLORIDE
     Indication: PROPHYLAXIS
     Dosage: UNK
     Route: 048
  5. MEPTIN [Concomitant]
     Active Substance: PROCATEROL HYDROCHLORIDE
     Indication: PROPHYLAXIS
     Dosage: UNK
     Route: 048
  6. SINGULAIR [Concomitant]
     Active Substance: MONTELUKAST SODIUM
     Indication: PROPHYLAXIS
     Dosage: UNK
     Route: 048
  7. ROMIPLOSTIM - KHK [Suspect]
     Active Substance: ROMIPLOSTIM
     Indication: IMMUNE THROMBOCYTOPENIC PURPURA
     Dosage: 1 MUG/KG, QWK
     Route: 058
     Dates: start: 20140723, end: 20141023

REACTIONS (1)
  - Blast cell proliferation [Recovered/Resolved]

NARRATIVE: CASE EVENT DATE: 20141029
